FAERS Safety Report 8243560-5 (Version None)
Quarter: 2012Q1

REPORT INFORMATION
  Report Type: 
  Country: None (occurrence: None)
  Receive Date: 20120329
  Receipt Date: 20120327
  Transmission Date: 20120608
  Serious: Yes (Hospitalization)
  Sender: FDA-Public Use
  Company Number: PHEH2011US010244

PATIENT
  Sex: Male
  Weight: 85.3 kg

DRUGS (6)
  1. GILENYA [Suspect]
     Indication: MULTIPLE SCLEROSIS
     Dosage: 0.5 MG, QD
     Route: 048
     Dates: start: 20110817, end: 20111101
  2. LAMICTAL [Concomitant]
     Dosage: 25 UKN, BID
  3. GABAPENTIN [Concomitant]
     Dosage: 800 MG, TID
  4. AMANTADINE HCL [Concomitant]
     Dosage: 100 UKN, BID
  5. DIAZEPAM [Concomitant]
     Dosage: 5 MG, QHS
  6. AMITRIP [Concomitant]
     Dosage: 150 MG, QHS

REACTIONS (8)
  - APHASIA [None]
  - NAUSEA [None]
  - ENCEPHALOPATHY [None]
  - DIARRHOEA [None]
  - PYREXIA [None]
  - DYSPNOEA [None]
  - DISORIENTATION [None]
  - CHILLS [None]
